FAERS Safety Report 8616914-2 (Version None)
Quarter: 2012Q3

REPORT INFORMATION
  Report Type: 
  Country: None (occurrence: None)
  Receive Date: 20120823
  Receipt Date: 20120810
  Transmission Date: 20120928
  Serious: No
  Sender: FDA-Public Use
  Company Number: US-009507513-1208USA005984

PATIENT

DRUGS (2)
  1. ZOLPIDEM TARTRATE [Concomitant]
  2. SAPHRIS [Suspect]
     Indication: BIPOLAR DISORDER
     Dosage: 5 MG, QD
     Route: 060
     Dates: start: 20120808, end: 20120809

REACTIONS (7)
  - MOTION SICKNESS [None]
  - DYSPHAGIA [None]
  - INCORRECT DOSE ADMINISTERED [None]
  - DIZZINESS [None]
  - HYPOAESTHESIA ORAL [None]
  - DYSKINESIA [None]
  - VOMITING [None]
